FAERS Safety Report 5849836-0 (Version None)
Quarter: 2008Q3

REPORT INFORMATION
  Report Type: 
  Country: None (occurrence: None)
  Receive Date: 20080818
  Receipt Date: 20080818
  Transmission Date: 20090109
  Serious: No
  Sender: FDA-Public Use
  Company Number: None

PATIENT
  Age: 65 Year
  Sex: Male
  Weight: 106.5953 kg

DRUGS (1)
  1. CIPROFLOXACIN HCL [Suspect]
     Indication: BACTERIAL FOOD POISONING
     Dosage: 500 MG 2 TIMES A DAY PO
     Route: 048
     Dates: start: 20080815, end: 20080816

REACTIONS (4)
  - HEART RATE INCREASED [None]
  - PRURITUS [None]
  - RASH [None]
  - STOMATITIS [None]
